FAERS Safety Report 23355804 (Version 1)
Quarter: 2024Q1

REPORT INFORMATION
  Report Type: Spontaneous
  Country: DE (occurrence: DE)
  Receive Date: 20240102
  Receipt Date: 20240102
  Transmission Date: 20240410
  Serious: Yes (Other)
  Sender: FDA-Public Use
  Company Number: None

PATIENT

DRUGS (2)
  1. ALBUTEROL [Suspect]
     Active Substance: ALBUTEROL
     Indication: Bronchitis
     Dosage: 4 GTT, QID
     Route: 055
     Dates: start: 20230220, end: 20230223
  2. ALBUTEROL [Suspect]
     Active Substance: ALBUTEROL
     Indication: Oxygen saturation decreased

REACTIONS (4)
  - Hallucination [Recovered/Resolved]
  - Restlessness [Recovered/Resolved]
  - Abnormal dreams [Recovered/Resolved]
  - Psychomotor hyperactivity [Recovered/Resolved]

NARRATIVE: CASE EVENT DATE: 20230220
